FAERS Safety Report 7318704-X (Version None)
Quarter: 2011Q1

REPORT INFORMATION
  Report Type: 
  Country: None (occurrence: None)
  Receive Date: 20110228
  Receipt Date: 20110216
  Transmission Date: 20110831
  Serious: No
  Sender: FDA-Public Use
  Company Number: US-JNJFOC-20101206252

PATIENT
  Sex: Male

DRUGS (4)
  1. HYDROCODONE BITARTRATE [Concomitant]
     Indication: PAIN
  2. PROMETHAZINE [Concomitant]
     Indication: NAUSEA
  3. FENTANYL-100 [Suspect]
     Indication: PAIN
     Dosage: NDC#: 0781-7243-55
     Route: 062
  4. HYDROMORPHONE HCL [Concomitant]
     Indication: PAIN

REACTIONS (4)
  - NAUSEA [None]
  - DIZZINESS [None]
  - POOR QUALITY DRUG ADMINISTERED [None]
  - PRODUCT QUALITY ISSUE [None]
